FAERS Safety Report 23262172 (Version 3)
Quarter: 2023Q4

REPORT INFORMATION
  Report Type: Spontaneous
  Country: DE (occurrence: DE)
  Receive Date: 20231205
  Receipt Date: 20231214
  Transmission Date: 20240109
  Serious: Yes (Hospitalization, Other)
  Sender: FDA-Public Use
  Company Number: DE-SANOFI-01834413

PATIENT
  Age: 22 Year
  Sex: Female

DRUGS (1)
  1. DUPIXENT [Suspect]
     Active Substance: DUPILUMAB
     Indication: Chronic rhinosinusitis with nasal polyps
     Dosage: UNK, QOW
     Dates: start: 20220201, end: 20231102

REACTIONS (9)
  - Autoimmune hepatitis [Unknown]
  - Hepatic enzyme increased [Unknown]
  - Jaundice [Unknown]
  - Chromaturia [Unknown]
  - Yellow skin [Unknown]
  - Faeces pale [Unknown]
  - Nausea [Unknown]
  - Dysgeusia [Unknown]
  - Blood immunoglobulin G increased [Unknown]

NARRATIVE: CASE EVENT DATE: 20220901
